FAERS Safety Report 5292542-4 (Version None)
Quarter: 2007Q2

REPORT INFORMATION
  Report Type: 
  Country: None (occurrence: None)
  Receive Date: 20070403
  Receipt Date: 20070327
  Transmission Date: 20071010
  Serious: Yes (Death)
  Sender: FDA-Public Use
  Company Number: 163-21880-07030462

PATIENT
  Age: 38 Year
  Sex: Male

DRUGS (1)
  1. REVLIMID [Suspect]
     Indication: HODGKIN'S DISEASE
     Dosage: 10MG - 5MG, EVERY OTHER DAY, ORAL
     Route: 048
     Dates: start: 20060301, end: 20060501

REACTIONS (1)
  - ACUTE LYMPHOCYTIC LEUKAEMIA [None]
